FAERS Safety Report 11938378 (Version 1)
Quarter: 2016Q1

REPORT INFORMATION
  Report Type: Report from Study
  Country: US (occurrence: US)
  Receive Date: 20160122
  Receipt Date: 20160122
  Transmission Date: 20160526
  Serious: Yes (Congenital Anomaly)
  Sender: FDA-Public Use
  Company Number: US-BRISTOL-MYERS SQUIBB COMPANY-15068646

PATIENT
  Sex: Male
  Weight: 3.49 kg

DRUGS (1)
  1. ENTECAVIR. [Suspect]
     Active Substance: ENTECAVIR
     Indication: PRODUCT USED FOR UNKNOWN INDICATION
     Dosage: UNK
     Route: 064
     Dates: start: 20080804, end: 20090503

REACTIONS (5)
  - Foetal exposure during pregnancy [Unknown]
  - Hydrocele [Recovered/Resolved]
  - Dacryostenosis acquired [Recovered/Resolved]
  - Eczema [Unknown]
  - Asthma [Unknown]
